FAERS Safety Report 4897660-8 (Version None)
Quarter: 2006Q1

REPORT INFORMATION
  Report Type: 
  Country: None (occurrence: None)
  Receive Date: 20060130
  Receipt Date: 20060116
  Transmission Date: 20060701
  Serious: Yes (Other)
  Sender: FDA-Public Use
  Company Number: 2006008910

PATIENT
  Age: 73 Year
  Sex: Female
  Weight: 70.3075 kg

DRUGS (7)
  1. MEDROL [Suspect]
     Indication: FACIAL PALSY
     Dosage: 4 MG, ORAL
     Route: 048
     Dates: start: 20051231, end: 20060101
  2. LYRICA [Suspect]
     Indication: NEURITIS
     Dosage: 50 MG, 1 D, ORAL
     Route: 048
     Dates: start: 20060114
  3. FAMCICLOVIR (FAMCICLOVIR) [Suspect]
     Indication: FACIAL PALSY
     Dates: start: 20051231, end: 20060101
  4. LORTAB [Suspect]
     Indication: NEURALGIA
  5. COZAAR [Concomitant]
  6. MACRODANTIN [Concomitant]
  7. HYDROCODONE BITARTRATE [Concomitant]

REACTIONS (4)
  - DRUG INEFFECTIVE [None]
  - INFECTION [None]
  - NERVE INJURY [None]
  - NEURALGIA [None]
